FAERS Safety Report 7546631-1 (Version None)
Quarter: 2011Q2

REPORT INFORMATION
  Report Type: 
  Country: None (occurrence: None)
  Receive Date: 20110614
  Receipt Date: 20110601
  Transmission Date: 20111010
  Serious: Yes (Death)
  Sender: FDA-Public Use
  Company Number: TR-ACTELION-A-CH2011-49781

PATIENT
  Age: 24 Year
  Sex: Male
  Weight: 50 kg

DRUGS (4)
  1. TRACLEER [Suspect]
     Indication: PULMONARY ARTERIAL HYPERTENSION
     Dosage: 125 MG, BID
     Route: 048
  2. IMMUNE GLOBULIN NOS [Concomitant]
  3. CYCLOPHOSPHAMIDE [Concomitant]
  4. TRACLEER [Suspect]
     Dosage: 62.5 MG, BID
     Route: 048

REACTIONS (3)
  - CARDIOPULMONARY FAILURE [None]
  - CONCOMITANT DISEASE PROGRESSION [None]
  - SYSTEMIC SCLEROSIS [None]
